FAERS Safety Report 6769636-7 (Version None)
Quarter: 2010Q2

REPORT INFORMATION
  Report Type: 
  Country: None (occurrence: None)
  Receive Date: 20100615
  Receipt Date: 20100607
  Transmission Date: 20101027
  Serious: Yes (Hospitalization, Other)
  Sender: FDA-Public Use
  Company Number: US-PFIZER INC-2010056634

PATIENT
  Age: 96 Year
  Sex: Female

DRUGS (2)
  1. DETROL LA [Suspect]
     Dosage: 4 UNK, UNK
  2. TOLTERODINE TARTRATE [Suspect]
     Dosage: UNK

REACTIONS (5)
  - CELLULITIS [None]
  - DRUG INEFFECTIVE [None]
  - NOCTURIA [None]
  - OSTEOMYELITIS [None]
  - PRODUCT SUBSTITUTION ISSUE [None]
